FAERS Safety Report 12855817 (Version 1)
Quarter: 2016Q4

REPORT INFORMATION
  Report Type: Spontaneous
  Country: GB (occurrence: GB)
  Receive Date: 20161018
  Receipt Date: 20161018
  Transmission Date: 20170207
  Serious: Yes (Other)
  Sender: FDA-Public Use
  Company Number: GB-DEXPHARM-20162053

PATIENT
  Age: 23 Year
  Sex: Female
  Weight: 64 kg

DRUGS (10)
  1. INTAL [Concomitant]
     Active Substance: CROMOLYN SODIUM
     Dosage: DAILY DOSE: 4 GTT DROP(S) EVERY DAYS
     Dates: start: 20160701
  2. ZOLPIDEM [Suspect]
     Active Substance: ZOLPIDEM\ZOLPIDEM TARTRATE
     Dosage: AT NIGHT
     Dates: start: 20160927
  3. COCODAMOL [Suspect]
     Active Substance: ACETAMINOPHEN\CODEINE PHOSPHATE
     Dosage: TAKE 1 OR 2 4 TIMES A DAY
     Dates: start: 20160927
  4. NAPROXEN. [Concomitant]
     Active Substance: NAPROXEN
     Dosage: BUT NOT RECOMMENDED LONG
     Dates: start: 20160923, end: 20160927
  5. OMEPRAZOLE. [Suspect]
     Active Substance: OMEPRAZOLE
     Dates: start: 20160927
  6. DESOGESTREL [Concomitant]
     Active Substance: DESOGESTREL
     Dosage: DAILY DOSE: 1 DF DOSAGE FORM EVERY DAYS
     Dates: start: 20160812
  7. BECONASE AQ [Concomitant]
     Active Substance: BECLOMETHASONE DIPROPIONATE MONOHYDRATE
     Dosage: DAILY DOSE: 4 DF DOSAGE FORM EVERY DAYS
     Dates: start: 20160701
  8. COLECALCIFEROL [Concomitant]
     Active Substance: CHOLECALCIFEROL
     Dosage: DAILY DOSE: 1 DF DOSAGE FORM EVERY DAYS
     Dates: start: 20160701
  9. CETIRIZINE [Concomitant]
     Active Substance: CETIRIZINE HYDROCHLORIDE
     Dosage: DAILY DOSE: 1 DF DOSAGE FORM EVERY DAYS
     Dates: start: 20160701
  10. IBUPROFEN. [Suspect]
     Active Substance: IBUPROFEN
     Dosage: DAILY DOSE: 3 DF DOSAGE FORM EVERY DAYS
     Dates: start: 20160927

REACTIONS (1)
  - Nausea [Recovered/Resolved]

NARRATIVE: CASE EVENT DATE: 20160928
